FAERS Safety Report 4373507-3 (Version None)
Quarter: 2004Q1

REPORT INFORMATION
  Report Type: 
  Country: None (occurrence: None)
  Receive Date: 20040305
  Receipt Date: 20040126
  Transmission Date: 20041129
  Serious: Yes (Other)
  Sender: FDA-Public Use
  Company Number: 2004UW01310

PATIENT

DRUGS (1)
  1. CRESTOR [Suspect]

REACTIONS (1)
  - BLOOD TRIGLYCERIDES INCREASED [None]
